FAERS Safety Report 20084809 (Version 2)
Quarter: 2021Q4

REPORT INFORMATION
  Report Type: Spontaneous
  Country: JP (occurrence: JP)
  Receive Date: 20211118
  Receipt Date: 20211129
  Transmission Date: 20220303
  Serious: Yes (Other)
  Sender: FDA-Public Use
  Company Number: JP-SUN PHARMACEUTICAL INDUSTRIES LTD-2021RR-317918

PATIENT
  Age: 60 Year
  Sex: Male

DRUGS (2)
  1. GEMCITABINE [Suspect]
     Active Substance: GEMCITABINE
     Indication: Adenocarcinoma pancreas
     Dosage: 1000 MILLIGRAM/SQ. METER, ON DAYS 1 AND 8, EVERY 3 WEEKS
     Route: 042
  2. TS-1 [Suspect]
     Active Substance: GIMERACIL\OTERACIL\TEGAFUR
     Indication: Adenocarcinoma pancreas
     Dosage: 50 MILLIGRAM, BID
     Route: 048

REACTIONS (1)
  - Enteritis necroticans [Unknown]
